FAERS Safety Report 10668750 (Version 2)
Quarter: 2014Q4

REPORT INFORMATION
  Report Type: Spontaneous
  Country: US (occurrence: US)
  Receive Date: 20141222
  Receipt Date: 20141223
  Transmission Date: 20150529
  Serious: Yes (Other)
  Sender: FDA-Public Use
  Company Number: US-PFIZER INC-2014350611

PATIENT
  Age: 30 Year
  Sex: Male
  Weight: 91 kg

DRUGS (4)
  1. LISINOPRIL. [Concomitant]
     Active Substance: LISINOPRIL
     Indication: HYPERTENSION
     Dosage: 5 MG, 1X/DAY
  2. CHANTIX [Suspect]
     Active Substance: VARENICLINE TARTRATE
     Indication: SMOKING CESSATION THERAPY
     Dosage: 1 MG, 2X/DAY
     Dates: start: 20141009
  3. AMBIEN [Concomitant]
     Active Substance: ZOLPIDEM TARTRATE
     Dosage: 5 MG, 1X/DAY
  4. MULTIVITAMINS [Concomitant]
     Active Substance: VITAMINS
     Dosage: UNK, DAILY

REACTIONS (9)
  - Coordination abnormal [Recovered/Resolved]
  - Photophobia [Recovered/Resolved]
  - Headache [Not Recovered/Not Resolved]
  - Abnormal behaviour [Unknown]
  - Aggression [Unknown]
  - Somnolence [Recovered/Resolved]
  - Loss of consciousness [Unknown]
  - Abnormal sleep-related event [Not Recovered/Not Resolved]
  - Post concussion syndrome [Recovered/Resolved]

NARRATIVE: CASE EVENT DATE: 201412
